FAERS Safety Report 24015290 (Version 4)
Quarter: 2024Q4

REPORT INFORMATION
  Report Type: Spontaneous
  Country: CH (occurrence: CH)
  Receive Date: 20240626
  Receipt Date: 20241010
  Transmission Date: 20250114
  Serious: No
  Sender: PFIZER
  Company Number: CH-PFIZER INC-202400196810

PATIENT

DRUGS (1)
  1. DEPO-PROVERA [Suspect]
     Active Substance: MEDROXYPROGESTERONE ACETATE
     Indication: Contraception
     Dosage: UNK

REACTIONS (4)
  - Incorrect dose administered by device [Unknown]
  - Device occlusion [Unknown]
  - Device difficult to use [Unknown]
  - Device defective [Unknown]

NARRATIVE: CASE EVENT DATE: 20240424
